FAERS Safety Report 5528738-3 (Version None)
Quarter: 2007Q4

REPORT INFORMATION
  Report Type: 
  Country: None (occurrence: None)
  Receive Date: 20071126
  Receipt Date: 20071119
  Transmission Date: 20080405
  Serious: Yes (Life-Threatening, Other)
  Sender: FDA-Public Use
  Company Number: 2007SP017568

PATIENT
  Age: 59 Year
  Sex: Female
  Weight: 55.3388 kg

DRUGS (4)
  1. PROVENTIL-HFA [Suspect]
     Indication: WHEEZING
     Dosage: QD; PO
     Route: 048
  2. SPIRIVA [Concomitant]
  3. ADVAIR DISKUS 100/50 [Concomitant]
  4. WARRICK'S ALBUTEROL [Concomitant]

REACTIONS (4)
  - DRUG HYPERSENSITIVITY [None]
  - PALPITATIONS [None]
  - PHARYNGEAL OEDEMA [None]
  - REACTION TO DRUG EXCIPIENTS [None]
